FAERS Safety Report 19233400 (Version 1)
Quarter: 2021Q2

REPORT INFORMATION
  Report Type: Spontaneous
  Country: US (occurrence: US)
  Receive Date: 20210507
  Receipt Date: 20210507
  Transmission Date: 20210717
  Serious: No
  Sender: FDA-Public Use
  Company Number: US-PFIZER INC-2021455143

PATIENT
  Age: 9 Year
  Sex: Female

DRUGS (1)
  1. ETHOSUXIMIDE. [Suspect]
     Active Substance: ETHOSUXIMIDE
     Dosage: UNK
     Dates: start: 20210317

REACTIONS (2)
  - Lip swelling [Unknown]
  - Rash [Unknown]

NARRATIVE: CASE EVENT DATE: 20210324
